FAERS Safety Report 24232380 (Version 1)
Quarter: 2024Q3

REPORT INFORMATION
  Report Type: Spontaneous
  Country: FR (occurrence: FR)
  Receive Date: 20240821
  Receipt Date: 20240821
  Transmission Date: 20241017
  Serious: Yes (Hospitalization, Other)
  Sender: AUROBINDO
  Company Number: FR-EMA-DD-20240808-7483181-123026

PATIENT
  Age: 46 Year
  Sex: Male

DRUGS (4)
  1. MYCOPHENOLATE MOFETIL [Suspect]
     Active Substance: MYCOPHENOLATE MOFETIL
     Indication: Uveitis
     Dosage: UNK
     Route: 065
  2. MYCOPHENOLATE MOFETIL [Suspect]
     Active Substance: MYCOPHENOLATE MOFETIL
     Indication: Behcet^s syndrome
     Dosage: 2 GRAM, ONCE A DAY (GIVEN FOR 14 MONTHS)
     Route: 065
  3. INFLIXIMAB [Suspect]
     Active Substance: INFLIXIMAB
     Indication: Uveitis
     Dosage: 5 MILLIGRAM/KILOGRAM (5 MG/KG/INFUSION (400 MG))
     Route: 042
     Dates: start: 200701
  4. INFLIXIMAB [Suspect]
     Active Substance: INFLIXIMAB
     Indication: Behcet^s syndrome
     Dosage: 3 MILLIGRAM/KILOGRAM (3 MG/KG/INFUSION (250 MG))
     Route: 042
     Dates: start: 201601

REACTIONS (6)
  - Confusional state [Recovered/Resolved]
  - Hemiplegia [Recovered/Resolved]
  - Meningitis cryptococcal [Recovered/Resolved]
  - Deafness bilateral [Recovered/Resolved]
  - Apraxia [Recovered/Resolved]
  - Product use in unapproved indication [Unknown]

NARRATIVE: CASE EVENT DATE: 20070101
